FAERS Safety Report 5314058-9 (Version None)
Quarter: 2007Q2

REPORT INFORMATION
  Report Type: 
  Country: None (occurrence: None)
  Receive Date: 20070501
  Receipt Date: 20070426
  Transmission Date: 20071010
  Serious: Yes (Hospitalization)
  Sender: FDA-Public Use
  Company Number: JP-SP-2007-01347

PATIENT
  Age: 80 Year
  Sex: Male

DRUGS (1)
  1. IMMUCYST [Suspect]
     Indication: BLADDER CANCER
     Route: 065

REACTIONS (1)
  - INTERSTITIAL LUNG DISEASE [None]
